FAERS Safety Report 9421823 (Version 1)
Quarter: 2013Q3

REPORT INFORMATION
  Report Type: Spontaneous
  Country: US (occurrence: None)
  Receive Date: 20130724
  Receipt Date: 20130724
  Transmission Date: 20140515
  Serious: Yes (Life-Threatening)
  Sender: FDA-Public Use
  Company Number: None

PATIENT
  Age: 45 Year
  Sex: Male
  Weight: 82 kg

DRUGS (12)
  1. INSULIN-GLARGINE [Suspect]
     Indication: DIABETES MELLITUS
     Route: 058
     Dates: start: 20130315, end: 20130317
  2. POTASSIUM [Concomitant]
  3. METHADONE [Concomitant]
  4. AMITRIPTYLINE [Concomitant]
  5. LASIX [Concomitant]
  6. NICODERM [Concomitant]
  7. LOVENOX [Concomitant]
  8. PROTONIX [Concomitant]
  9. TRAZODONE [Concomitant]
  10. LACTOBACILLUS [Concomitant]
  11. LEVOFLOXACIN [Concomitant]
  12. TYLENOL [Concomitant]

REACTIONS (1)
  - Blood glucose decreased [None]
